FAERS Safety Report 7808475-2 (Version None)
Quarter: 2011Q4

REPORT INFORMATION
  Report Type: 
  Country: None (occurrence: None)
  Receive Date: 20111007
  Receipt Date: 20110926
  Transmission Date: 20120403
  Serious: Yes (Other)
  Sender: FDA-Public Use
  Company Number: CL-342-2011

PATIENT
  Age: 85 Year

DRUGS (1)
  1. CIPROFLOXACIN [Suspect]
     Indication: ARTHRITIS INFECTIVE
     Dosage: 500MG BD ORAL; SEVEN OR MORE DAYS
     Route: 048

REACTIONS (3)
  - MYOCLONUS [None]
  - DELIRIUM [None]
  - HALLUCINATION [None]
